FAERS Safety Report 9899113 (Version 1)
Quarter: 2014Q1

REPORT INFORMATION
  Report Type: Spontaneous
  Country: US (occurrence: US)
  Receive Date: 20140214
  Receipt Date: 20140214
  Transmission Date: 20141002
  Serious: No
  Sender: FDA-Public Use
  Company Number: US-GILEAD-2011-0043030

PATIENT
  Sex: Female

DRUGS (3)
  1. LETAIRIS [Suspect]
     Indication: PULMONARY HYPERTENSION
     Route: 048
     Dates: start: 20110719
  2. LETAIRIS [Suspect]
     Indication: RHEUMATOID ARTHRITIS
  3. LETAIRIS [Suspect]
     Indication: BRONCHIECTASIS

REACTIONS (2)
  - Dyspnoea [Unknown]
  - Drug ineffective [Unknown]
